FAERS Safety Report 5362200-6 (Version None)
Quarter: 2007Q2

REPORT INFORMATION
  Report Type: 
  Country: None (occurrence: None)
  Receive Date: 20070618
  Receipt Date: 20070618
  Transmission Date: 20071010
  Serious: No
  Sender: FDA-Public Use
  Company Number: None

PATIENT

DRUGS (2)
  1. IBUPROFEN [Suspect]
     Dosage: TABLET
  2. GENTAMICIN [Suspect]
     Dosage: INJECTABLE

REACTIONS (25)
  - ABDOMINAL PAIN [None]
  - ANURIA [None]
  - BLOOD ALBUMIN DECREASED [None]
  - CARDIOMEGALY [None]
  - CHILLS [None]
  - CHOLANGITIS [None]
  - CONSTIPATION [None]
  - CONTRAINDICATION TO MEDICAL TREATMENT [None]
  - ENDOCARDITIS [None]
  - HAEMATOCRIT DECREASED [None]
  - HAEMOGLOBIN DECREASED [None]
  - HEPATITIS C [None]
  - INCORRECT DOSE ADMINISTERED [None]
  - INTERNATIONAL NORMALISED RATIO INCREASED [None]
  - MEDICATION ERROR [None]
  - NAUSEA [None]
  - OSTEOMYELITIS [None]
  - PAIN [None]
  - PAIN IN EXTREMITY [None]
  - PYREXIA [None]
  - REFUSAL OF TREATMENT BY PATIENT [None]
  - RENAL DISORDER [None]
  - RENAL FAILURE ACUTE [None]
  - TREATMENT NONCOMPLIANCE [None]
  - VOMITING [None]
